FAERS Safety Report 6270226-3 (Version None)
Quarter: 2009Q3

REPORT INFORMATION
  Report Type: 
  Country: None (occurrence: None)
  Receive Date: 20090716
  Receipt Date: 20090623
  Transmission Date: 20100115
  Serious: No
  Sender: FDA-Public Use
  Company Number: US-BAYER-200911947BCC

PATIENT
  Sex: Female
  Weight: 77 kg

DRUGS (5)
  1. ALEVE (CAPLET) [Suspect]
     Indication: ARTHRALGIA
     Dosage: AS USED: 880 MG  UNIT DOSE: 220 MG
     Route: 048
     Dates: start: 20090619, end: 20090622
  2. ATENOLOL [Concomitant]
     Route: 065
  3. COZAAR [Concomitant]
     Route: 065
  4. LIPITOR [Concomitant]
     Route: 065
  5. ACTONEL [Concomitant]
     Route: 065
     Dates: start: 20090620, end: 20090620

REACTIONS (1)
  - CONSTIPATION [None]
